FAERS Safety Report 18688097 (Version 1)
Quarter: 2020Q4

REPORT INFORMATION
  Report Type: Other
  Country: CA (occurrence: CA)
  Receive Date: 20201231
  Receipt Date: 20201231
  Transmission Date: 20210114
  Serious: Yes (Disabling, Other)
  Sender: FDA-Public Use
  Company Number: CA-APOTEX-2020AP024971

PATIENT
  Age: 55 Year
  Sex: Female
  Weight: 92 kg

DRUGS (2)
  1. SYNTHROID [Concomitant]
     Active Substance: LEVOTHYROXINE SODIUM
     Indication: PRODUCT USED FOR UNKNOWN INDICATION
     Dosage: UNK
     Route: 065
  2. MOXIFLOXACIN. [Suspect]
     Active Substance: MOXIFLOXACIN
     Indication: PNEUMONIA
     Dosage: 400 MILLIGRAM, TOTAL
     Route: 048

REACTIONS (9)
  - Arthralgia [Unknown]
  - Uveitis [Unknown]
  - Tendon pain [Unknown]
  - Paraesthesia [Unknown]
  - Muscle twitching [Unknown]
  - Myalgia [Unknown]
  - Fatigue [Unknown]
  - Muscle spasms [Unknown]
  - Pain [Unknown]
